FAERS Safety Report 15981854 (Version 1)
Quarter: 2019Q1

REPORT INFORMATION
  Report Type: Spontaneous
  Country: JP (occurrence: JP)
  Receive Date: 20190219
  Receipt Date: 20190219
  Transmission Date: 20190418
  Serious: Yes (Hospitalization)
  Sender: FDA-Public Use
  Company Number: JP-MYLANLABS-2019M1016309

PATIENT
  Age: 52 Year
  Sex: Female

DRUGS (9)
  1. VALSARTAN. [Concomitant]
     Active Substance: VALSARTAN
     Indication: HYPERTENSION
     Route: 065
     Dates: start: 20160401
  2. METFORMIN [Concomitant]
     Active Substance: METFORMIN HYDROCHLORIDE
     Indication: DIABETES MELLITUS
     Route: 065
     Dates: start: 20160401
  3. PROPRANOLOL [Concomitant]
     Active Substance: PROPRANOLOL HYDROCHLORIDE
     Indication: TACHYCARDIA
     Route: 065
     Dates: start: 2016
  4. DOXAZOSIN [Suspect]
     Active Substance: DOXAZOSIN\DOXAZOSIN MESYLATE
     Indication: HYPERTENSION
     Dosage: 4 MILLIGRAM, QD
     Route: 048
     Dates: start: 201604, end: 201604
  5. DOXAZOSIN [Suspect]
     Active Substance: DOXAZOSIN\DOXAZOSIN MESYLATE
     Dosage: 2 MILLIGRAM, QD
     Route: 048
     Dates: start: 201604
  6. NICARDIPINE [Concomitant]
     Active Substance: NICARDIPINE
     Indication: HYPERTENSION
     Route: 065
     Dates: start: 201604
  7. NICARDIPINE [Concomitant]
     Active Substance: NICARDIPINE
     Route: 065
     Dates: start: 2016
  8. INSULIN [Concomitant]
     Active Substance: INSULIN NOS
     Indication: DIABETES MELLITUS
     Route: 065
     Dates: start: 201604
  9. DOXAZOSIN [Suspect]
     Active Substance: DOXAZOSIN\DOXAZOSIN MESYLATE
     Dosage: 8 MILLIGRAM, QD
     Route: 048
     Dates: start: 201604, end: 201604

REACTIONS (4)
  - Phaeochromocytoma [Recovered/Resolved]
  - Shock [Recovered/Resolved]
  - Tumour rupture [Recovered/Resolved]
  - Haemorrhagic tumour necrosis [Recovered/Resolved]

NARRATIVE: CASE EVENT DATE: 201604
